FAERS Safety Report 19426051 (Version 1)
Quarter: 2021Q2

REPORT INFORMATION
  Report Type: Spontaneous
  Country: CO (occurrence: CO)
  Receive Date: 20210617
  Receipt Date: 20210617
  Transmission Date: 20210717
  Serious: Yes (Hospitalization)
  Sender: FDA-Public Use
  Company Number: CO-TEVA-2021-CO-1924640

PATIENT
  Age: 61 Year
  Sex: Male

DRUGS (4)
  1. RITUXIMAB. [Suspect]
     Active Substance: RITUXIMAB
     Indication: IMMUNOSUPPRESSANT DRUG THERAPY
     Route: 065
  2. PREDNISOLONE. [Suspect]
     Active Substance: PREDNISOLONE
     Indication: RHEUMATOID ARTHRITIS
     Route: 065
  3. METHOTREXATE. [Suspect]
     Active Substance: METHOTREXATE
     Indication: RHEUMATOID ARTHRITIS
     Route: 065
  4. CHLOROQUINE. [Suspect]
     Active Substance: CHLOROQUINE
     Indication: RHEUMATOID ARTHRITIS
     Route: 065

REACTIONS (2)
  - Atypical mycobacterial infection [Recovered/Resolved]
  - Endocarditis bacterial [Recovered/Resolved]
